FAERS Safety Report 8891283 (Version 4)
Quarter: 2013Q3

REPORT INFORMATION
  Report Type: Spontaneous
  Country: US (occurrence: US)
  Receive Date: 20121107
  Receipt Date: 20130724
  Transmission Date: 20140515
  Serious: Yes (Hospitalization, Other)
  Sender: FDA-Public Use
  Company Number: US-009507513-1211USA001626

PATIENT
  Sex: Female

DRUGS (6)
  1. FOSAMAX [Suspect]
     Indication: OSTEOPENIA
     Dosage: 70 MG, QW
     Route: 048
     Dates: end: 20091231
  2. FOSAMAX [Suspect]
     Indication: OSTEOPOROSIS
  3. ALENDRONATE SODIUM [Suspect]
     Indication: OSTEOPENIA
     Dosage: 70 MG, UNK
     Route: 048
     Dates: start: 20090101, end: 20101101
  4. ALENDRONATE SODIUM [Suspect]
     Indication: OSTEOPOROSIS
  5. VITAMINS (UNSPECIFIED) [Concomitant]
  6. CALCIUM (UNSPECIFIED) (+) VITAMIN D (UNSPECIFIED) [Concomitant]
     Dosage: 600 MG, QAM
     Route: 048

REACTIONS (98)
  - Femur fracture [Unknown]
  - Open reduction of fracture [Unknown]
  - Fall [Unknown]
  - Femur fracture [Unknown]
  - Femur fracture [Unknown]
  - Hospitalisation [Unknown]
  - Hospitalisation [Unknown]
  - Coronary artery disease [Unknown]
  - Pulmonary embolism [Unknown]
  - Pleural effusion [Recovered/Resolved]
  - Acute respiratory failure [Unknown]
  - Chest pain [Unknown]
  - Humerus fracture [Unknown]
  - Hypotension [Unknown]
  - Dehydration [Unknown]
  - Renal failure chronic [Not Recovered/Not Resolved]
  - Pleural effusion [Unknown]
  - Open reduction of fracture [Unknown]
  - Vertebroplasty [Unknown]
  - Joint dislocation reduction [Unknown]
  - Fracture reduction [Unknown]
  - Pneumonia [Unknown]
  - Device failure [Unknown]
  - Generalised oedema [Unknown]
  - Joint dislocation [Unknown]
  - Chronic respiratory failure [Not Recovered/Not Resolved]
  - Metabolic encephalopathy [Unknown]
  - Sepsis [Unknown]
  - Cellulitis [Unknown]
  - Pulmonary embolism [Not Recovered/Not Resolved]
  - Aspiration pleural cavity [Unknown]
  - Constipation [Unknown]
  - Abdominal pain [Unknown]
  - Fall [Unknown]
  - Depression [Unknown]
  - Spinal fracture [Unknown]
  - Spinal compression fracture [Unknown]
  - Anxiety [Unknown]
  - Confusional state [Unknown]
  - Pain [Unknown]
  - Fall [Unknown]
  - Joint injury [Unknown]
  - Scoliosis [Unknown]
  - Spinal pain [Unknown]
  - Drug intolerance [Recovered/Resolved]
  - Hyponatraemia [Recovered/Resolved]
  - Hypothyroidism [Unknown]
  - Atrial fibrillation [Not Recovered/Not Resolved]
  - Pulmonary hypertension [Not Recovered/Not Resolved]
  - Synovial cyst [Unknown]
  - Anaemia [Unknown]
  - Diverticulum [Unknown]
  - Hypertension [Not Recovered/Not Resolved]
  - Osteoarthritis [Not Recovered/Not Resolved]
  - Hysterectomy [Unknown]
  - Hyperkalaemia [Recovered/Resolved]
  - Cerebral atrophy [Not Recovered/Not Resolved]
  - Excoriation [Unknown]
  - Oedema [Unknown]
  - Pain [Not Recovered/Not Resolved]
  - Cholelithiasis [Not Recovered/Not Resolved]
  - Arteriosclerosis [Unknown]
  - Urinary tract infection bacterial [Recovered/Resolved]
  - Cardiac failure congestive [Unknown]
  - Decreased appetite [Unknown]
  - Oliguria [Unknown]
  - Muscular weakness [Unknown]
  - Gait disturbance [Unknown]
  - Hypokalaemia [Unknown]
  - Dementia [Not Recovered/Not Resolved]
  - Oedema [Not Recovered/Not Resolved]
  - Cataract nuclear [Not Recovered/Not Resolved]
  - Hypomagnesaemia [Recovered/Resolved]
  - Hypotension [Unknown]
  - Chronic obstructive pulmonary disease [Not Recovered/Not Resolved]
  - Hyperlipidaemia [Unknown]
  - Atrial fibrillation [Unknown]
  - Ecchymosis [Unknown]
  - Haemorrhagic anaemia [Unknown]
  - Coagulopathy [Unknown]
  - Cerebral microangiopathy [Unknown]
  - Conjunctivitis [Unknown]
  - Mitral valve incompetence [Unknown]
  - Hyponatraemia [Unknown]
  - Thrombocytopenia [Unknown]
  - Aspartate aminotransferase increased [Unknown]
  - Hypokalaemia [Unknown]
  - Metabolic alkalosis [Unknown]
  - Atelectasis [Unknown]
  - Skin lesion [Unknown]
  - Paraesthesia [Unknown]
  - Gout [Unknown]
  - Pain in extremity [Unknown]
  - Asthenia [Unknown]
  - Hypophosphataemia [Recovered/Resolved]
  - Back pain [Not Recovered/Not Resolved]
  - Gastrooesophageal reflux disease [Not Recovered/Not Resolved]
  - Oedema peripheral [Unknown]
